FAERS Safety Report 4457320-4 (Version None)
Quarter: 2004Q3

REPORT INFORMATION
  Report Type: 
  Country: None (occurrence: None)
  Receive Date: 20040922
  Receipt Date: 20040913
  Transmission Date: 20050211
  Serious: Yes (Death, Hospitalization, Other)
  Sender: FDA-Public Use
  Company Number: US-JNJFOC-20040903711

PATIENT
  Age: 57 Year
  Sex: Female

DRUGS (2)
  1. EXTRA STRENGTH TYLENOL [Suspect]
     Indication: SUICIDE ATTEMPT
  2. ETHANOL (ETHANOL) [Suspect]
     Indication: SUICIDE ATTEMPT

REACTIONS (19)
  - AGITATION [None]
  - ARTERIOSCLEROSIS [None]
  - BILIRUBIN CONJUGATED INCREASED [None]
  - BLOOD BILIRUBIN INCREASED [None]
  - BLOOD CREATININE INCREASED [None]
  - BLOOD ETHANOL INCREASED [None]
  - BLOOD PH DECREASED [None]
  - BLOOD UREA INCREASED [None]
  - CARDIAC ARREST [None]
  - DYSPNOEA [None]
  - HEPATIC CONGESTION [None]
  - HEPATIC NECROSIS [None]
  - HEPATIC STEATOSIS [None]
  - HYPOTENSION [None]
  - HYPOTHERMIA [None]
  - INTERNATIONAL NORMALISED RATIO DECREASED [None]
  - LETHARGY [None]
  - PULMONARY OEDEMA [None]
  - TROPONIN INCREASED [None]
